FAERS Safety Report 21659383 (Version 2)
Quarter: 2022Q4

REPORT INFORMATION
  Report Type: Spontaneous
  Country: SI (occurrence: SI)
  Receive Date: 20221129
  Receipt Date: 20221215
  Transmission Date: 20230113
  Serious: Yes (Hospitalization)
  Sender: FDA-Public Use
  Company Number: SI-BIOGEN-2022BI01163025

PATIENT
  Age: 17 Year
  Sex: Male

DRUGS (2)
  1. SPINRAZA [Suspect]
     Active Substance: NUSINERSEN
     Indication: Spinal muscular atrophy
     Route: 050
  2. LACTECON [Concomitant]
     Indication: Anal incontinence
     Route: 050

REACTIONS (2)
  - Urinary retention [Recovered/Resolved]
  - Procedural complication [Unknown]

NARRATIVE: CASE EVENT DATE: 20170101
